FAERS Safety Report 15533856 (Version 1)
Quarter: 2018Q4

REPORT INFORMATION
  Report Type: Spontaneous
  Country: US (occurrence: US)
  Receive Date: 20181019
  Receipt Date: 20181019
  Transmission Date: 20190205
  Serious: Yes (Hospitalization)
  Sender: FDA-Public Use
  Company Number: US-DSJP-DSU-2017-149223

PATIENT
  Age: 70 Year
  Sex: Female

DRUGS (8)
  1. TUMS                               /00193601/ [Concomitant]
     Active Substance: CALCIUM CARBONATE\MAGNESIUM CARBONATE\MAGNESIUM TRISILICATE
     Indication: PEPTIC ULCER
     Dosage: UNK, PRN
     Route: 065
  2. SIMVASTATIN. [Suspect]
     Active Substance: SIMVASTATIN
     Indication: HYPERLIPIDAEMIA
     Dosage: 10 MG, QD
     Route: 048
     Dates: start: 201702
  3. CLOPIDOGREL [Suspect]
     Active Substance: CLOPIDOGREL BISULFATE
     Indication: MYOCARDIAL INFARCTION
     Dosage: 75 MG, QD
     Route: 048
     Dates: start: 201702
  4. ISOSORB /07346401/ [Suspect]
     Active Substance: ISOSORBIDE MONONITRATE
     Indication: MYOCARDIAL INFARCTION
     Dosage: 30 MG, UNK
     Route: 048
     Dates: start: 201702
  5. LISINOPRIL. [Suspect]
     Active Substance: LISINOPRIL
     Indication: MYOCARDIAL INFARCTION
     Dosage: 10 MG, UNK
     Route: 048
     Dates: start: 201702
  6. ASPIRIN                            /00002701/ [Concomitant]
     Active Substance: ASPIRIN
     Indication: ISCHAEMIC HEART DISEASE PROPHYLAXIS
     Dosage: 81 MG, QD
     Route: 048
  7. WELCHOL [Suspect]
     Active Substance: COLESEVELAM HYDROCHLORIDE
     Indication: HYPERLIPIDAEMIA
     Dosage: 3.75 G, QD
     Route: 048
     Dates: start: 201701, end: 201710
  8. METOPROLOL. [Suspect]
     Active Substance: METOPROLOL
     Indication: MYOCARDIAL INFARCTION
     Dosage: 100 MG, QD
     Route: 048
     Dates: start: 201702

REACTIONS (10)
  - Pain [Recovering/Resolving]
  - Abdominal discomfort [Recovered/Resolved]
  - Cholelithiasis [Unknown]
  - Myocardial infarction [Recovered/Resolved]
  - Blood triglycerides increased [Unknown]
  - Constipation [Recovered/Resolved]
  - Diarrhoea [Recovering/Resolving]
  - High density lipoprotein decreased [Unknown]
  - Faeces pale [Unknown]
  - Biliary tract disorder [Unknown]

NARRATIVE: CASE EVENT DATE: 201701
